FAERS Safety Report 22643406 (Version 1)
Quarter: 2023Q2

REPORT INFORMATION
  Report Type: Other
  Country: US (occurrence: None)
  Receive Date: 20230627
  Receipt Date: 20230627
  Transmission Date: 20230722
  Serious: No
  Sender: FDA-Public Use
  Company Number: US-ROCHE-3374391

PATIENT
  Age: 55 Year
  Sex: Female

DRUGS (15)
  1. OCREVUS [Suspect]
     Active Substance: OCRELIZUMAB
     Indication: Relapsing-remitting multiple sclerosis
     Route: 042
     Dates: start: 20170928
  2. OCREVUS [Suspect]
     Active Substance: OCRELIZUMAB
     Dosage: OVER 3.5 HOURS, DATE OF TREATMENT: 26/MAY/2023,
     Route: 042
     Dates: start: 20210817
  3. FLEXERIL [Concomitant]
     Active Substance: CYCLOBENZAPRINE HYDROCHLORIDE
  4. TYSABRI [Concomitant]
     Active Substance: NATALIZUMAB
  5. ACETAMINOPHEN [Concomitant]
     Active Substance: ACETAMINOPHEN
  6. XANAX [Concomitant]
     Active Substance: ALPRAZOLAM
  7. VALIUM [Concomitant]
     Active Substance: DIAZEPAM
  8. VOLTAREN [Concomitant]
     Active Substance: DICLOFENAC SODIUM
  9. DIFLUCAN [Concomitant]
     Active Substance: FLUCONAZOLE
  10. MOTRIN [Concomitant]
     Active Substance: IBUPROFEN
  11. LIDODERM [Concomitant]
     Active Substance: LIDOCAINE
  12. PAMELOR [Concomitant]
     Active Substance: NORTRIPTYLINE HYDROCHLORIDE
  13. ZOCOR [Concomitant]
     Active Substance: SIMVASTATIN
  14. TIZANIDINE [Concomitant]
     Active Substance: TIZANIDINE
  15. KENALOG [Concomitant]
     Active Substance: TRIAMCINOLONE ACETONIDE

REACTIONS (5)
  - Intraocular pressure increased [Not Recovered/Not Resolved]
  - Herpes zoster [Recovered/Resolved]
  - Neuropathy peripheral [Not Recovered/Not Resolved]
  - Diarrhoea [Recovered/Resolved]
  - Pyrexia [Recovered/Resolved]

NARRATIVE: CASE EVENT DATE: 20170928
